FAERS Safety Report 7281998-3 (Version None)
Quarter: 2011Q1

REPORT INFORMATION
  Report Type: 
  Country: None (occurrence: None)
  Receive Date: 20110208
  Receipt Date: 20110203
  Transmission Date: 20110831
  Serious: Yes (Other)
  Sender: FDA-Public Use
  Company Number: US-PFIZER INC-2011025789

PATIENT

DRUGS (1)
  1. CHANTIX [Suspect]
     Dosage: UNK
     Dates: end: 20110127

REACTIONS (6)
  - AMNESIA [None]
  - AGITATION [None]
  - MOOD ALTERED [None]
  - ARTHRALGIA [None]
  - DRY EYE [None]
  - EYE PAIN [None]
